FAERS Safety Report 5016414-5 (Version None)
Quarter: 2006Q2

REPORT INFORMATION
  Report Type: 
  Country: None (occurrence: None)
  Receive Date: 20060602
  Receipt Date: 20021025
  Transmission Date: 20061013
  Serious: Yes (Other)
  Sender: FDA-Public Use
  Company Number: 2002UW14509

PATIENT
  Age: 68 Year
  Sex: Female
  Weight: 77.3 kg

DRUGS (3)
  1. TAMOXIFEN [Suspect]
     Indication: BREAST CANCER FEMALE
     Route: 048
     Dates: start: 20011101
  2. ACTONEL [Concomitant]
     Route: 048
  3. VERAPAMIL [Concomitant]
     Route: 048

REACTIONS (6)
  - ALOPECIA [None]
  - CATARACT [None]
  - MACULAR DEGENERATION [None]
  - OEDEMA PERIPHERAL [None]
  - RENAL DISORDER [None]
  - VAGINAL DISCHARGE [None]
